FAERS Safety Report 25483173 (Version 4)
Quarter: 2025Q3

REPORT INFORMATION
  Report Type: Report from Study
  Country: KR (occurrence: KR)
  Receive Date: 20250626
  Receipt Date: 20250812
  Transmission Date: 20251020
  Serious: Yes (Death, Hospitalization)
  Sender: MYLAN
  Company Number: KR-MYLANLABS-2025M1052415

PATIENT
  Age: 78 Year
  Sex: Male
  Weight: 65 kg

DRUGS (56)
  1. PRETOMANID [Suspect]
     Active Substance: PRETOMANID
     Indication: Tuberculosis
     Dosage: 200 MILLIGRAM, QD
  2. PRETOMANID [Suspect]
     Active Substance: PRETOMANID
     Dosage: 200 MILLIGRAM, QD
  3. PRETOMANID [Suspect]
     Active Substance: PRETOMANID
     Dosage: 200 MILLIGRAM, QD
     Route: 048
  4. PRETOMANID [Suspect]
     Active Substance: PRETOMANID
     Dosage: 200 MILLIGRAM, QD
     Route: 048
  5. PRETOMANID [Suspect]
     Active Substance: PRETOMANID
     Dosage: 200 MILLIGRAM, QD
     Dates: start: 20250530, end: 20250729
  6. PRETOMANID [Suspect]
     Active Substance: PRETOMANID
     Dosage: 200 MILLIGRAM, QD
     Dates: start: 20250530, end: 20250729
  7. PRETOMANID [Suspect]
     Active Substance: PRETOMANID
     Dosage: 200 MILLIGRAM, QD
     Route: 048
     Dates: start: 20250530, end: 20250729
  8. PRETOMANID [Suspect]
     Active Substance: PRETOMANID
     Dosage: 200 MILLIGRAM, QD
     Route: 048
     Dates: start: 20250530, end: 20250729
  9. NORVASC [Suspect]
     Active Substance: AMLODIPINE BESYLATE
     Indication: Hypertension
     Dosage: UNK
     Dates: start: 20241129, end: 20250629
  10. NORVASC [Suspect]
     Active Substance: AMLODIPINE BESYLATE
     Dosage: UNK
     Route: 048
     Dates: start: 20241129, end: 20250629
  11. NORVASC [Suspect]
     Active Substance: AMLODIPINE BESYLATE
     Dosage: UNK
     Route: 048
     Dates: start: 20241129, end: 20250629
  12. NORVASC [Suspect]
     Active Substance: AMLODIPINE BESYLATE
     Dosage: UNK
     Dates: start: 20241129, end: 20250629
  13. BEDAQUILINE [Suspect]
     Active Substance: BEDAQUILINE
     Indication: Tuberculosis
     Dosage: 400 MILLIGRAM, QD
     Route: 048
     Dates: start: 20250530, end: 20250612
  14. BEDAQUILINE [Suspect]
     Active Substance: BEDAQUILINE
     Dosage: 400 MILLIGRAM, QD
     Dates: start: 20250530, end: 20250612
  15. BEDAQUILINE [Suspect]
     Active Substance: BEDAQUILINE
     Dosage: 400 MILLIGRAM, QD
     Dates: start: 20250530, end: 20250612
  16. BEDAQUILINE [Suspect]
     Active Substance: BEDAQUILINE
     Dosage: 400 MILLIGRAM, QD
     Route: 048
     Dates: start: 20250530, end: 20250612
  17. BEDAQUILINE [Suspect]
     Active Substance: BEDAQUILINE
     Dosage: 200 MILLIGRAM, 3XW
     Route: 048
     Dates: start: 20250613, end: 20250729
  18. BEDAQUILINE [Suspect]
     Active Substance: BEDAQUILINE
     Dosage: 200 MILLIGRAM, 3XW
     Dates: start: 20250613, end: 20250729
  19. BEDAQUILINE [Suspect]
     Active Substance: BEDAQUILINE
     Dosage: 200 MILLIGRAM, 3XW
     Dates: start: 20250613, end: 20250729
  20. BEDAQUILINE [Suspect]
     Active Substance: BEDAQUILINE
     Dosage: 200 MILLIGRAM, 3XW
     Route: 048
     Dates: start: 20250613, end: 20250729
  21. LINEZOLID [Suspect]
     Active Substance: LINEZOLID
     Indication: Tuberculosis
     Dosage: 600 MILLIGRAM, QD
     Dates: start: 20250530, end: 20250723
  22. LINEZOLID [Suspect]
     Active Substance: LINEZOLID
     Dosage: 600 MILLIGRAM, QD
     Route: 048
     Dates: start: 20250530, end: 20250723
  23. LINEZOLID [Suspect]
     Active Substance: LINEZOLID
     Dosage: 600 MILLIGRAM, QD
     Route: 048
     Dates: start: 20250530, end: 20250723
  24. LINEZOLID [Suspect]
     Active Substance: LINEZOLID
     Dosage: 600 MILLIGRAM, QD
     Dates: start: 20250530, end: 20250723
  25. XARELTO [Concomitant]
     Active Substance: RIVAROXABAN
     Indication: Pulmonary embolism
     Dosage: UNK, QD
     Dates: start: 20241129, end: 20250613
  26. XARELTO [Concomitant]
     Active Substance: RIVAROXABAN
     Dosage: UNK, QD
     Route: 048
     Dates: start: 20241129, end: 20250613
  27. XARELTO [Concomitant]
     Active Substance: RIVAROXABAN
     Dosage: UNK, QD
     Route: 048
     Dates: start: 20241129, end: 20250613
  28. XARELTO [Concomitant]
     Active Substance: RIVAROXABAN
     Dosage: UNK, QD
     Dates: start: 20241129, end: 20250613
  29. RABEPRAZOLE SODIUM [Concomitant]
     Active Substance: RABEPRAZOLE SODIUM
     Indication: Prophylaxis
     Dosage: UNK
     Dates: start: 20241129, end: 20250629
  30. RABEPRAZOLE SODIUM [Concomitant]
     Active Substance: RABEPRAZOLE SODIUM
     Dosage: UNK
     Route: 048
     Dates: start: 20241129, end: 20250629
  31. RABEPRAZOLE SODIUM [Concomitant]
     Active Substance: RABEPRAZOLE SODIUM
     Dosage: UNK
     Route: 048
     Dates: start: 20241129, end: 20250629
  32. RABEPRAZOLE SODIUM [Concomitant]
     Active Substance: RABEPRAZOLE SODIUM
     Dosage: UNK
     Dates: start: 20241129, end: 20250629
  33. Anatan [Concomitant]
     Indication: Hypertension
     Dosage: UNK, QD
     Dates: start: 20241129, end: 20250629
  34. Anatan [Concomitant]
     Dosage: UNK, QD
     Route: 048
     Dates: start: 20241129, end: 20250629
  35. Anatan [Concomitant]
     Dosage: UNK, QD
     Route: 048
     Dates: start: 20241129, end: 20250629
  36. Anatan [Concomitant]
     Dosage: UNK, QD
     Dates: start: 20241129, end: 20250629
  37. CORDARONE [Concomitant]
     Active Substance: AMIODARONE HYDROCHLORIDE
     Indication: Atrial fibrillation
     Dosage: UNK, QD
     Dates: start: 20241129, end: 20250629
  38. CORDARONE [Concomitant]
     Active Substance: AMIODARONE HYDROCHLORIDE
     Dosage: UNK, QD
     Route: 048
     Dates: start: 20241129, end: 20250629
  39. CORDARONE [Concomitant]
     Active Substance: AMIODARONE HYDROCHLORIDE
     Dosage: UNK, QD
     Route: 048
     Dates: start: 20241129, end: 20250629
  40. CORDARONE [Concomitant]
     Active Substance: AMIODARONE HYDROCHLORIDE
     Dosage: UNK, QD
     Dates: start: 20241129, end: 20250629
  41. DILTIAZEM HYDROCHLORIDE [Concomitant]
     Active Substance: DILTIAZEM HYDROCHLORIDE
     Indication: Hypertension
     Dosage: UNK, QD
     Dates: start: 20241129, end: 20250629
  42. DILTIAZEM HYDROCHLORIDE [Concomitant]
     Active Substance: DILTIAZEM HYDROCHLORIDE
     Dosage: UNK, QD
     Route: 048
     Dates: start: 20241129, end: 20250629
  43. DILTIAZEM HYDROCHLORIDE [Concomitant]
     Active Substance: DILTIAZEM HYDROCHLORIDE
     Dosage: UNK, QD
     Route: 048
     Dates: start: 20241129, end: 20250629
  44. DILTIAZEM HYDROCHLORIDE [Concomitant]
     Active Substance: DILTIAZEM HYDROCHLORIDE
     Dosage: UNK, QD
     Dates: start: 20241129, end: 20250629
  45. Moroxacin [Concomitant]
     Indication: Tuberculosis
     Dosage: 400 MILLIGRAM, QD
     Dates: start: 20250530, end: 20250729
  46. Moroxacin [Concomitant]
     Dosage: 400 MILLIGRAM, QD
     Route: 048
     Dates: start: 20250530, end: 20250729
  47. Moroxacin [Concomitant]
     Dosage: 400 MILLIGRAM, QD
     Route: 048
     Dates: start: 20250530, end: 20250729
  48. Moroxacin [Concomitant]
     Dosage: 400 MILLIGRAM, QD
     Dates: start: 20250530, end: 20250729
  49. LAFUTIDINE [Concomitant]
     Active Substance: LAFUTIDINE
     Indication: Nausea
     Dosage: 10 MILLIGRAM, BID
     Dates: start: 20250704, end: 20250729
  50. LAFUTIDINE [Concomitant]
     Active Substance: LAFUTIDINE
     Dosage: 10 MILLIGRAM, BID
     Route: 048
     Dates: start: 20250704, end: 20250729
  51. LAFUTIDINE [Concomitant]
     Active Substance: LAFUTIDINE
     Dosage: 10 MILLIGRAM, BID
     Route: 048
     Dates: start: 20250704, end: 20250729
  52. LAFUTIDINE [Concomitant]
     Active Substance: LAFUTIDINE
     Dosage: 10 MILLIGRAM, BID
     Dates: start: 20250704, end: 20250729
  53. MOSAPRIDE CITRATE [Concomitant]
     Active Substance: MOSAPRIDE CITRATE
     Indication: Nausea
     Dosage: 5 MILLIGRAM, TID
     Dates: start: 20250704, end: 20250729
  54. MOSAPRIDE CITRATE [Concomitant]
     Active Substance: MOSAPRIDE CITRATE
     Dosage: 5 MILLIGRAM, TID
     Route: 048
     Dates: start: 20250704, end: 20250729
  55. MOSAPRIDE CITRATE [Concomitant]
     Active Substance: MOSAPRIDE CITRATE
     Dosage: 5 MILLIGRAM, TID
     Route: 048
     Dates: start: 20250704, end: 20250729
  56. MOSAPRIDE CITRATE [Concomitant]
     Active Substance: MOSAPRIDE CITRATE
     Dosage: 5 MILLIGRAM, TID
     Dates: start: 20250704, end: 20250729

REACTIONS (7)
  - Completed suicide [Fatal]
  - Vertigo [Recovered/Resolved]
  - Headache [Recovered/Resolved]
  - Tremor [Recovered/Resolved]
  - Decreased appetite [Unknown]
  - Dyspnoea [Unknown]
  - Bradycardia [Unknown]

NARRATIVE: CASE EVENT DATE: 20250615
